FAERS Safety Report 18359433 (Version 1)
Quarter: 2020Q4

REPORT INFORMATION
  Report Type: Spontaneous
  Country: US (occurrence: US)
  Receive Date: 20201008
  Receipt Date: 20201008
  Transmission Date: 20210114
  Serious: No
  Sender: FDA-Public Use
  Company Number: None

PATIENT
  Age: 77 Year
  Sex: Female
  Weight: 91.35 kg

DRUGS (16)
  1. CALCIUM [Concomitant]
     Active Substance: CALCIUM
  2. METOPROLOL. [Concomitant]
     Active Substance: METOPROLOL
  3. VIT D [Concomitant]
     Active Substance: VITAMIN D NOS
  4. TOBRADEX [Concomitant]
     Active Substance: DEXAMETHASONE\TOBRAMYCIN
  5. BIOTIN [Concomitant]
     Active Substance: BIOTIN
  6. MAGNESIUM [Concomitant]
     Active Substance: MAGNESIUM
  7. CRESTOR [Concomitant]
     Active Substance: ROSUVASTATIN CALCIUM
  8. FAMCICLOVIR. [Concomitant]
     Active Substance: FAMCICLOVIR
  9. FASLODEX [Concomitant]
     Active Substance: FULVESTRANT
  10. IBRANCE [Suspect]
     Active Substance: PALBOCICLIB
     Indication: BREAST CANCER
     Route: 048
     Dates: start: 20200108
  11. ASPIRIN. [Concomitant]
     Active Substance: ASPIRIN
  12. GARCINIA [Concomitant]
     Active Substance: DIETARY SUPPLEMENT
  13. LORAZEPAM. [Concomitant]
     Active Substance: LORAZEPAM
  14. MONTELUKAST [Concomitant]
     Active Substance: MONTELUKAST SODIUM
  15. PROTONIX [Concomitant]
     Active Substance: PANTOPRAZOLE SODIUM
  16. TRIAMTERENE-HCTZ [Concomitant]
     Active Substance: HYDROCHLOROTHIAZIDE\TRIAMTERENE

REACTIONS (1)
  - Fatigue [None]

NARRATIVE: CASE EVENT DATE: 20201008
